FAERS Safety Report 17641193 (Version 2)
Quarter: 2021Q2

REPORT INFORMATION
  Report Type: Report from Study
  Country: US (occurrence: US)
  Receive Date: 20200407
  Receipt Date: 20210513
  Transmission Date: 20210716
  Serious: No
  Sender: FDA-Public Use
  Company Number: NVSC2020US094402

PATIENT
  Sex: Female

DRUGS (1)
  1. ZOLGENSMA [Suspect]
     Active Substance: ONASEMNOGENE ABEPARVOVEC-XIOI
     Indication: SPINAL MUSCULAR ATROPHY
     Dosage: 3.81 MG/KG, ONCE/SINGLE
     Route: 042
     Dates: start: 20200826

REACTIONS (3)
  - Sitting disability [Unknown]
  - Weight gain poor [Unknown]
  - Dehydration [Unknown]
